FAERS Safety Report 5885283-3 (Version None)
Quarter: 2008Q3

REPORT INFORMATION
  Report Type: 
  Country: None (occurrence: None)
  Receive Date: 20080916
  Receipt Date: 20080909
  Transmission Date: 20090109
  Serious: Yes (Hospitalization, Other)
  Sender: FDA-Public Use
  Company Number: GB-PFIZER INC-2008068064

PATIENT
  Age: 14 Year
  Sex: Male

DRUGS (6)
  1. PREDNISOLONE [Suspect]
     Indication: JUVENILE ARTHRITIS
  2. DICLOFENAC [Suspect]
     Indication: JUVENILE ARTHRITIS
  3. METHOTREXATE [Suspect]
     Indication: JUVENILE ARTHRITIS
  4. ACYCLOVIR [Concomitant]
     Indication: HERPES ZOSTER
     Route: 042
  5. METHOTREXATE [Concomitant]
  6. PREDNISONE TAB [Concomitant]

REACTIONS (6)
  - BLOOD CREATININE INCREASED [None]
  - BLOOD UREA INCREASED [None]
  - DEHYDRATION [None]
  - HERPES ZOSTER [None]
  - RENAL FAILURE ACUTE [None]
  - VOMITING [None]
